FAERS Safety Report 9291246 (Version 3)
Quarter: 2013Q2

REPORT INFORMATION
  Report Type: Report from Study
  Country: US (occurrence: US)
  Receive Date: 20130515
  Receipt Date: 20130612
  Transmission Date: 20140414
  Serious: Yes (Hospitalization, Other)
  Sender: FDA-Public Use
  Company Number: US-ACTELION-A-US2013-83024

PATIENT
  Age: 57 Year
  Sex: Female

DRUGS (3)
  1. VELETRI [Suspect]
     Indication: PULMONARY ARTERIAL HYPERTENSION
     Dosage: 25 NG/KG, PER MIN
     Route: 042
     Dates: start: 201212
  2. ADCIRCA [Concomitant]
  3. LETAIRIS [Concomitant]

REACTIONS (3)
  - Myocardial infarction [Recovering/Resolving]
  - Stent placement [Recovering/Resolving]
  - Localised infection [Recovering/Resolving]
